FAERS Safety Report 4447233-6 (Version None)
Quarter: 2004Q3

REPORT INFORMATION
  Report Type: 
  Country: None (occurrence: None)
  Receive Date: 20040813
  Receipt Date: 20040709
  Transmission Date: 20050211
  Serious: No
  Sender: FDA-Public Use
  Company Number: S04-USA-04013-01

PATIENT
  Age: 66 Year
  Sex: Female

DRUGS (5)
  1. NAMENDA [Suspect]
     Indication: DEMENTIA
     Dosage: 15 MG QD PO
     Route: 048
     Dates: start: 20040629, end: 20040705
  2. NAMENDA [Suspect]
     Indication: DEMENTIA
     Dosage: 20 MG QD PO
     Route: 048
     Dates: start: 20040706
  3. NAMENDA [Suspect]
     Indication: DEMENTIA
     Dosage: 5 MG QD PO
     Route: 048
     Dates: start: 20040615, end: 20040621
  4. NAMENDA [Suspect]
     Indication: DEMENTIA
     Dosage: 10 MG QD PO
     Route: 048
     Dates: start: 20040622, end: 20040628
  5. ARICEPT [Concomitant]

REACTIONS (1)
  - DIARRHOEA [None]
